FAERS Safety Report 7700957-7 (Version None)
Quarter: 2011Q3

REPORT INFORMATION
  Report Type: 
  Country: None (occurrence: None)
  Receive Date: 20110822
  Receipt Date: 20110808
  Transmission Date: 20111222
  Serious: Yes (Hospitalization)
  Sender: FDA-Public Use
  Company Number: PHHY2011CA53755

PATIENT

DRUGS (1)
  1. ALISKIREN [Suspect]
     Dosage: UNK
     Dates: start: 20101231

REACTIONS (5)
  - DIARRHOEA [None]
  - EATING DISORDER [None]
  - WEIGHT DECREASED [None]
  - HYPOTENSION [None]
  - MAJOR DEPRESSION [None]
